FAERS Safety Report 4353319-7 (Version None)
Quarter: 2004Q2

REPORT INFORMATION
  Report Type: 
  Country: None (occurrence: None)
  Receive Date: 20040429
  Receipt Date: 20040413
  Transmission Date: 20050107
  Serious: Yes (Life-Threatening, Hospitalization)
  Sender: FDA-Public Use
  Company Number: 236166

PATIENT
  Age: 56 Year
  Sex: Male
  Weight: 85 kg

DRUGS (5)
  1. NOVOSEVEN [Suspect]
     Indication: POST PROCEDURAL HAEMORRHAGE
     Dosage: 90 UG/KG, SINGLE, INTRAVENOUS
     Route: 042
     Dates: start: 20040326
  2. PLATELETS [Concomitant]
  3. KRIOPRECIPITAT (FACTOR VIII (ANTIHAEMOPHILIC FACTOR)) [Concomitant]
  4. PLASMA [Concomitant]
  5. TIMENTIN (TICARCILLIN DISODIUM) [Concomitant]

REACTIONS (1)
  - ANAPHYLACTIC REACTION [None]
